FAERS Safety Report 16990364 (Version 1)
Quarter: 2019Q4

REPORT INFORMATION
  Report Type: Spontaneous
  Country: US (occurrence: US)
  Receive Date: 20191103
  Receipt Date: 20191103
  Transmission Date: 20200122
  Serious: Yes (Life-Threatening, Hospitalization)
  Sender: FDA-Public Use
  Company Number: None

PATIENT
  Age: 72 Year
  Sex: Female
  Weight: 54 kg

DRUGS (1)
  1. IMBRUVICA [Suspect]
     Active Substance: IBRUTINIB
     Indication: CHRONIC LYMPHOCYTIC LEUKAEMIA
     Route: 048
     Dates: start: 20190801, end: 20191006

REACTIONS (12)
  - Back pain [None]
  - Chills [None]
  - Rash erythematous [None]
  - Seizure [None]
  - Blood potassium decreased [None]
  - Abdominal pain [None]
  - Haemoglobin decreased [None]
  - Abdominal discomfort [None]
  - Rash papular [None]
  - Pustule [None]
  - Rash [None]
  - Blood sodium decreased [None]

NARRATIVE: CASE EVENT DATE: 20191010
